FAERS Safety Report 5015896-2 (Version None)
Quarter: 2006Q2

REPORT INFORMATION
  Report Type: 
  Country: None (occurrence: None)
  Receive Date: 20060525
  Receipt Date: 20060501
  Transmission Date: 20061013
  Serious: Yes (Hospitalization, Other)
  Sender: FDA-Public Use
  Company Number: CA200604002695

PATIENT
  Age: 87 Year
  Sex: Female

DRUGS (13)
  1. FORTEO [Suspect]
     Indication: OSTEOPOROSIS
     Dosage: 20 UG, DAILY (1/D)
     Dates: start: 20060126, end: 20060401
  2. IPRATROPIUM BROMIDE [Concomitant]
  3. GRAVOL TAB [Concomitant]
  4. ATIVAN [Concomitant]
  5. ASPIRIN [Concomitant]
  6. WARFARIN [Concomitant]
  7. ATACAND /SWE/ (CANDESARTAN CILEXETIL) [Concomitant]
  8. PREDNISONE [Concomitant]
  9. ATENOLOL [Concomitant]
  10. TIMOLOL MALEATE [Concomitant]
  11. NORTRIPTYLINE HCL [Concomitant]
  12. TYLENOL /USA/ (PARACETAMOL) [Concomitant]
  13. FORTEO [Concomitant]

REACTIONS (5)
  - ABASIA [None]
  - CEREBROVASCULAR ACCIDENT [None]
  - ELECTROLYTE DEPLETION [None]
  - MOBILITY DECREASED [None]
  - MUSCLE ATROPHY [None]
